FAERS Safety Report 5628957-1 (Version None)
Quarter: 2008Q1

REPORT INFORMATION
  Report Type: 
  Country: None (occurrence: None)
  Receive Date: 20080214
  Receipt Date: 20080207
  Transmission Date: 20080703
  Serious: Yes (Other)
  Sender: FDA-Public Use
  Company Number: 2008SP002965

PATIENT
  Sex: Female

DRUGS (3)
  1. CLARITIN [Suspect]
     Indication: LACRIMATION INCREASED
     Dosage: 1 DF;ONCE;PO
     Route: 048
     Dates: start: 20080206
  2. CLARITIN [Suspect]
     Indication: RHINORRHOEA
     Dosage: 1 DF;ONCE;PO
     Route: 048
     Dates: start: 20080206
  3. CLARITIN [Suspect]
     Indication: SNEEZING
     Dosage: 1 DF;ONCE;PO
     Route: 048
     Dates: start: 20080206

REACTIONS (2)
  - DYSURIA [None]
  - URINARY RETENTION [None]
